FAERS Safety Report 4546550-9 (Version None)
Quarter: 2005Q1

REPORT INFORMATION
  Report Type: 
  Country: None (occurrence: None)
  Receive Date: 20050106
  Receipt Date: 20041227
  Transmission Date: 20050727
  Serious: Yes (Hospitalization)
  Sender: FDA-Public Use
  Company Number: US-BRISTOL-MYERS SQUIBB COMPANY-12806741

PATIENT
  Sex: Male
  Weight: 75 kg

DRUGS (6)
  1. AMOXICILLIN [Suspect]
     Indication: UPPER RESPIRATORY TRACT INFECTION
  2. FRUSEMIDE [Suspect]
  3. LISINOPRIL [Suspect]
  4. CARVEDILOL [Suspect]
  5. ASPIRIN [Suspect]
  6. SIMVASTATIN [Suspect]
     Indication: HYPERCHOLESTEROLAEMIA

REACTIONS (1)
  - RHABDOMYOLYSIS [None]
